FAERS Safety Report 15449895 (Version 1)
Quarter: 2018Q3

REPORT INFORMATION
  Report Type: Spontaneous
  Country: US (occurrence: US)
  Receive Date: 20180926
  Receipt Date: 20180926
  Transmission Date: 20181010
  Serious: Yes (Life-Threatening)
  Sender: FDA-Public Use
  Company Number: None

PATIENT
  Age: 14 Year
  Sex: Male

DRUGS (1)
  1. NORDITROPIN [Suspect]
     Active Substance: SOMATROPIN
     Indication: GROWTH FAILURE
     Dosage: ?          QUANTITY:1 INJECTION(S);?
     Dates: start: 20170807, end: 20180909

REACTIONS (1)
  - Product use issue [None]

NARRATIVE: CASE EVENT DATE: 20180809
